FAERS Safety Report 4684368-7 (Version None)
Quarter: 2005Q2

REPORT INFORMATION
  Report Type: 
  Country: None (occurrence: None)
  Receive Date: 20050531
  Receipt Date: 20041019
  Transmission Date: 20051028
  Serious: Yes (Other)
  Sender: FDA-Public Use
  Company Number: USA041081583

PATIENT
  Age: 37 Year
  Sex: Female
  Weight: 63 kg

DRUGS (6)
  1. ZYPREXA [Suspect]
     Indication: DEMENTIA
     Dosage: 30 MG/1 DAY
  2. ZYPREXA [Suspect]
     Indication: ENCEPHALITIS
     Dosage: 30 MG/1 DAY
  3. ZYPREXA [Suspect]
     Indication: PSYCHOTIC DISORDER
     Dosage: 30 MG/1 DAY
  4. HALDOL (HALOPERIDOL DECANOATE) [Concomitant]
  5. DEPAKOTE [Concomitant]
  6. TOPAMAX [Concomitant]

REACTIONS (4)
  - ANOREXIA [None]
  - BLOOD GLUCOSE INCREASED [None]
  - PRESCRIBED OVERDOSE [None]
  - WEIGHT DECREASED [None]
